FAERS Safety Report 9084345 (Version 2)
Quarter: 2013Q1

REPORT INFORMATION
  Report Type: Spontaneous
  Country: US (occurrence: US)
  Receive Date: 20130131
  Receipt Date: 20130226
  Transmission Date: 20140127
  Serious: No
  Sender: FDA-Public Use
  Company Number: US-PFIZER INC-2013034044

PATIENT
  Age: 72 Year
  Sex: Male
  Weight: 111 kg

DRUGS (5)
  1. LYRICA [Suspect]
     Indication: PAIN IN EXTREMITY
     Dosage: 75 MG, DAILY
     Dates: start: 201301
  2. TRIAMCINOLONE ACETONIDE [Suspect]
     Indication: ERYTHEMA
     Dosage: UNK, DAILY
     Dates: start: 201301
  3. ECONAZOLE NITRATE [Suspect]
     Indication: ERYTHEMA
     Dosage: UNK, DAILY
     Dates: start: 201301
  4. PRADAXA [Concomitant]
     Indication: CARDIAC DISORDER
     Dosage: 150 MG, 2X/DAY
  5. ATORVASTATIN [Concomitant]
     Indication: BLOOD CHOLESTEROL ABNORMAL
     Dosage: 10 MG, DAILY

REACTIONS (3)
  - Drug ineffective [Unknown]
  - Drug ineffective [Not Recovered/Not Resolved]
  - Erythema [Not Recovered/Not Resolved]
